FAERS Safety Report 24791130 (Version 1)
Quarter: 2024Q4

REPORT INFORMATION
  Report Type: Spontaneous
  Country: CO (occurrence: CO)
  Receive Date: 20241230
  Receipt Date: 20241230
  Transmission Date: 20250115
  Serious: Yes (Other)
  Sender: PFIZER
  Company Number: CO-PFIZER INC-PV202400167898

PATIENT
  Age: 76 Year
  Sex: Male

DRUGS (1)
  1. VYNDAMAX [Suspect]
     Active Substance: TAFAMIDIS
     Dosage: 61 MG, DAILY
     Route: 048

REACTIONS (5)
  - Arrhythmia [Unknown]
  - Cardiac disorder [Unknown]
  - Suffocation feeling [Unknown]
  - Swelling [Unknown]
  - Pain [Unknown]
